FAERS Safety Report 14664616 (Version 1)
Quarter: 2018Q1

REPORT INFORMATION
  Report Type: Report from Study
  Country: US (occurrence: US)
  Receive Date: 20180321
  Receipt Date: 20180321
  Transmission Date: 20180509
  Serious: Yes (Life-Threatening, Other)
  Sender: FDA-Public Use
  Company Number: PHEH2018US010727

PATIENT
  Sex: Female

DRUGS (1)
  1. AFINITOR [Suspect]
     Active Substance: EVEROLIMUS
     Indication: PRODUCT USED FOR UNKNOWN INDICATION
     Route: 065

REACTIONS (9)
  - Incontinence [Unknown]
  - Lung neoplasm [Unknown]
  - Neoplasm [Unknown]
  - Weight decreased [Unknown]
  - Drug ineffective [Unknown]
  - Feeling abnormal [Unknown]
  - Neoplasm progression [Unknown]
  - Diarrhoea [Unknown]
  - Tumour invasion [Unknown]
